FAERS Safety Report 11878202 (Version 1)
Quarter: 2015Q4

REPORT INFORMATION
  Report Type: Spontaneous
  Country: OM (occurrence: OM)
  Receive Date: 20151230
  Receipt Date: 20151230
  Transmission Date: 20160305
  Serious: Yes (Other)
  Sender: FDA-Public Use
  Company Number: OM-ACCORD-036636

PATIENT
  Age: 52 Month
  Sex: Male

DRUGS (2)
  1. ATENOLOL/ATENOLOL HYDROCHLORIDE [Concomitant]
     Indication: HYPERTENSION
  2. AMLODIPINE [Suspect]
     Active Substance: AMLODIPINE BESYLATE
     Indication: PRODUCT USED FOR UNKNOWN INDICATION
     Dosage: 5 MG OD (0.27 MG/KG/DAY)

REACTIONS (2)
  - Periorbital oedema [Unknown]
  - Oedema peripheral [Recovered/Resolved]
